FAERS Safety Report 8421961-X (Version None)
Quarter: 2012Q2

REPORT INFORMATION
  Report Type: 
  Country: None (occurrence: None)
  Receive Date: 20120608
  Receipt Date: 20120531
  Transmission Date: 20120825
  Serious: Yes (Hospitalization)
  Sender: FDA-Public Use
  Company Number: CH-UCBSA-058711

PATIENT
  Sex: Male
  Weight: 2.43 kg

DRUGS (1)
  1. KEPPRA [Suspect]
     Route: 064

REACTIONS (4)
  - LOW BIRTH WEIGHT BABY [None]
  - NEONATAL RESPIRATORY DISTRESS SYNDROME [None]
  - PREMATURE BABY [None]
  - FOETAL EXPOSURE DURING PREGNANCY [None]
